FAERS Safety Report 7985919-7 (Version None)
Quarter: 2011Q4

REPORT INFORMATION
  Report Type: 
  Country: None (occurrence: None)
  Receive Date: 20111216
  Receipt Date: 20111213
  Transmission Date: 20120403
  Serious: Yes (Congenital Anomaly, Other)
  Sender: FDA-Public Use
  Company Number: US-PFIZER INC-2011289829

PATIENT
  Sex: Female
  Weight: 3.14 kg

DRUGS (3)
  1. ZOLOFT [Suspect]
     Indication: ANXIETY
     Dosage: 50 MG, 1X/DAY
     Route: 064
  2. SERTRALINE HYDROCHLORIDE [Suspect]
     Dosage: 50 MG HALF TABLET FOR 7 DAYS, THEN ONE TABLET A DAY
     Route: 064
     Dates: start: 20100604
  3. ZOLOFT [Suspect]
     Dosage: 100 MG, 1X/DAY
     Route: 064
     Dates: end: 20100101

REACTIONS (5)
  - VENTRICULAR SEPTAL DEFECT [None]
  - CARDIAC ANEURYSM [None]
  - TRANSPOSITION OF THE GREAT VESSELS [None]
  - MATERNAL EXPOSURE TIMING UNSPECIFIED [None]
  - DOUBLE OUTLET RIGHT VENTRICLE [None]
